FAERS Safety Report 16185975 (Version 1)
Quarter: 2019Q2

REPORT INFORMATION
  Report Type: Report from Study
  Country: JP (occurrence: JP)
  Receive Date: 20190411
  Receipt Date: 20190411
  Transmission Date: 20190711
  Serious: Yes (Death)
  Sender: FDA-Public Use
  Company Number: JP-BAUSCH-BL-2019-010836

PATIENT
  Age: 57 Year
  Sex: Male

DRUGS (13)
  1. CHOREAZINE [Suspect]
     Active Substance: TETRABENAZINE
     Route: 048
     Dates: start: 2018, end: 2018
  2. RISPERDAL [Concomitant]
     Active Substance: RISPERIDONE
     Indication: PRODUCT USED FOR UNKNOWN INDICATION
     Route: 048
  3. SILECE [Concomitant]
     Active Substance: FLUNITRAZEPAM
     Indication: PRODUCT USED FOR UNKNOWN INDICATION
     Route: 048
  4. CERCINE [Concomitant]
     Active Substance: DIAZEPAM
     Indication: PRODUCT USED FOR UNKNOWN INDICATION
     Route: 048
  5. RIVOTRIL [Concomitant]
     Active Substance: CLONAZEPAM
     Indication: PRODUCT USED FOR UNKNOWN INDICATION
     Route: 048
  6. CHOREAZINE [Suspect]
     Active Substance: TETRABENAZINE
     Route: 048
     Dates: start: 20180104, end: 2018
  7. PURSENNID [SENNOSIDE A+B CALCIUM] [Concomitant]
     Active Substance: SENNOSIDES A AND B
     Indication: PRODUCT USED FOR UNKNOWN INDICATION
     Route: 065
  8. YOKUKANSAN [Concomitant]
     Active Substance: HERBALS
     Indication: PRODUCT USED FOR UNKNOWN INDICATION
     Route: 065
  9. CHOREAZINE [Suspect]
     Active Substance: TETRABENAZINE
     Dosage: INCREASED
     Route: 048
     Dates: start: 20180625, end: 2018
  10. CHOREAZINE [Suspect]
     Active Substance: TETRABENAZINE
     Route: 048
     Dates: start: 20180515, end: 2018
  11. CHOREAZINE [Suspect]
     Active Substance: TETRABENAZINE
     Dosage: INCREASED
     Route: 048
     Dates: start: 20180820, end: 2018
  12. CHOREAZINE [Suspect]
     Active Substance: TETRABENAZINE
     Indication: HUNTINGTON^S DISEASE
     Route: 048
     Dates: start: 20140512
  13. REMINYL [Concomitant]
     Active Substance: GALANTAMINE
     Indication: PRODUCT USED FOR UNKNOWN INDICATION
     Route: 048

REACTIONS (2)
  - Death [Fatal]
  - Dyspraxia [Unknown]

NARRATIVE: CASE EVENT DATE: 201812
